FAERS Safety Report 24806572 (Version 1)
Quarter: 2025Q1

REPORT INFORMATION
  Report Type: Report from Study
  Country: JP (occurrence: JP)
  Receive Date: 20250103
  Receipt Date: 20250103
  Transmission Date: 20250409
  Serious: Yes (Hospitalization)
  Sender: TAKEDA
  Company Number: JP-TAKEDA-2024TJP010626

PATIENT
  Age: 55 Year
  Sex: Male
  Weight: 65 kg

DRUGS (22)
  1. TEDUGLUTIDE [Suspect]
     Active Substance: TEDUGLUTIDE
     Indication: Short-bowel syndrome
  2. TEDUGLUTIDE [Suspect]
     Active Substance: TEDUGLUTIDE
  3. TEDUGLUTIDE [Suspect]
     Active Substance: TEDUGLUTIDE
  4. TEDUGLUTIDE [Suspect]
     Active Substance: TEDUGLUTIDE
  5. PENTASA [Concomitant]
     Active Substance: MESALAMINE
     Indication: Short-bowel syndrome
  6. AZATHIOPRINE [Concomitant]
     Active Substance: AZATHIOPRINE
     Indication: Short-bowel syndrome
  7. MIYA-BM [Concomitant]
     Active Substance: CLOSTRIDIUM BUTYRICUM SPORES STRAIN M-55
     Indication: Short-bowel syndrome
  8. DIMETHICONE [Concomitant]
     Active Substance: DIMETHICONE
     Indication: Short-bowel syndrome
  9. PREDNISOLONE SODIUM PHOSPHATE [Concomitant]
     Active Substance: PREDNISOLONE SODIUM PHOSPHATE
     Indication: Short-bowel syndrome
  10. SULFASALAZINE [Concomitant]
     Active Substance: SULFASALAZINE
     Indication: Short-bowel syndrome
  11. FULCALIQ [Concomitant]
     Active Substance: AMINO ACIDS\CARBOHYDRATES\ELECTROLYTES NOS\VITAMINS
     Indication: Short-bowel syndrome
  12. INFLIXIMAB [Concomitant]
     Active Substance: INFLIXIMAB
     Indication: Short-bowel syndrome
  13. URSO [Concomitant]
     Active Substance: URSODIOL
  14. METHYLCOBALAMIN [Concomitant]
     Active Substance: METHYLCOBALAMIN
  15. GASTER [Concomitant]
     Active Substance: FAMOTIDINE
  16. LOXOPROFEN SODIUM [Concomitant]
     Active Substance: LOXOPROFEN SODIUM
  17. REBAMIPIDE [Concomitant]
     Active Substance: REBAMIPIDE
  18. CIPROFLOXACIN [Concomitant]
     Active Substance: CIPROFLOXACIN
  19. PROCATEROL HYDROCHLORIDE [Concomitant]
     Active Substance: PROCATEROL HYDROCHLORIDE
  20. RINDERON VG [Concomitant]
     Active Substance: BETAMETHASONE VALERATE\GENTAMICIN SULFATE
     Indication: Short-bowel syndrome
  21. SKYRIZI [Concomitant]
     Active Substance: RISANKIZUMAB-RZAA
     Indication: Short-bowel syndrome
  22. ZINC [Concomitant]
     Active Substance: ZINC

REACTIONS (3)
  - Catheter site discharge [Recovered/Resolved]
  - Malaise [Recovered/Resolved]
  - COVID-19 [Recovered/Resolved]

NARRATIVE: CASE EVENT DATE: 20220701
